FAERS Safety Report 6786343-5 (Version None)
Quarter: 2010Q2

REPORT INFORMATION
  Report Type: 
  Country: None (occurrence: None)
  Receive Date: 20100623
  Receipt Date: 20100513
  Transmission Date: 20101027
  Serious: Yes (Other)
  Sender: FDA-Public Use
  Company Number: PHHY2010TR33255

PATIENT
  Age: 34 Year
  Sex: Female

DRUGS (3)
  1. IMATINIB [Suspect]
     Indication: PULMONARY VENO-OCCLUSIVE DISEASE
     Dosage: 400 MG, QD
  2. SILDENAFIL CITRATE [Concomitant]
     Dosage: 2X25 MG
  3. SILDENAFIL CITRATE [Concomitant]
     Dosage: 2X50 MG

REACTIONS (3)
  - DISEASE PROGRESSION [None]
  - PULMONARY VENO-OCCLUSIVE DISEASE [None]
  - TREATMENT FAILURE [None]
